FAERS Safety Report 17420425 (Version 1)
Quarter: 2020Q1

REPORT INFORMATION
  Report Type: Spontaneous
  Country: US (occurrence: US)
  Receive Date: 20200130
  Receipt Date: 20200130
  Transmission Date: 20200409
  Serious: No
  Sender: FDA-Public Use
  Company Number: None

PATIENT
  Age: 74 Year
  Sex: Male
  Weight: 109 kg

DRUGS (1)
  1. BEVACIZUMAB (BEVACIZUMAB 25MG/ML INJ, 4ML) [Suspect]
     Active Substance: BEVACIZUMAB
     Indication: NEOVASCULAR AGE-RELATED MACULAR DEGENERATION
     Route: 031
     Dates: start: 20191205, end: 20191205

REACTIONS (9)
  - Choroidal detachment [None]
  - Eye pain [None]
  - Visual impairment [None]
  - Blindness [None]
  - Vomiting [None]
  - Visual acuity reduced [None]
  - Endophthalmitis [None]
  - Nausea [None]
  - Ocular hyperaemia [None]

NARRATIVE: CASE EVENT DATE: 20191207
